FAERS Safety Report 4987645-5 (Version None)
Quarter: 2006Q2

REPORT INFORMATION
  Report Type: 
  Country: None (occurrence: None)
  Receive Date: 20060426
  Receipt Date: 20060330
  Transmission Date: 20061013
  Serious: Yes (Other)
  Sender: FDA-Public Use
  Company Number: 2006053874

PATIENT
  Age: 39 Year
  Sex: Male

DRUGS (7)
  1. HYDROXYZINE HCL [Suspect]
     Indication: ILL-DEFINED DISORDER
  2. METOPROLOL SUCCINATE [Concomitant]
  3. EDRONAX [Concomitant]
  4. LISINOPRIL [Concomitant]
  5. MIRTAZAPINE [Concomitant]
  6. OPIPRAMOL (OPIPRAMOL) [Concomitant]
  7. ALCOHOL (ETHANOL) [Concomitant]

REACTIONS (4)
  - ALCOHOL USE [None]
  - SOMNOLENCE [None]
  - SPEECH DISORDER [None]
  - SUICIDE ATTEMPT [None]
